FAERS Safety Report 14364734 (Version 1)
Quarter: 2018Q1

REPORT INFORMATION
  Report Type: Other
  Country: FI (occurrence: FI)
  Receive Date: 20180108
  Receipt Date: 20180108
  Transmission Date: 20180509
  Serious: Yes (Life-Threatening)
  Sender: FDA-Public Use
  Company Number: FI-GE HEALTHCARE LIFE SCIENCES-2018CSU000054

PATIENT

DRUGS (1)
  1. OMNIPAQUE [Suspect]
     Active Substance: IOHEXOL
     Indication: PRODUCT USED FOR UNKNOWN INDICATION
     Dosage: UNK UNK, SINGLE
     Route: 042
     Dates: start: 20171130, end: 20171130

REACTIONS (4)
  - Blood pressure increased [Unknown]
  - Urticaria [Unknown]
  - Paraesthesia [Unknown]
  - Erythema [Unknown]

NARRATIVE: CASE EVENT DATE: 20171130
